FAERS Safety Report 25083825 (Version 1)
Quarter: 2025Q1

REPORT INFORMATION
  Report Type: Spontaneous
  Country: IE (occurrence: IE)
  Receive Date: 20250317
  Receipt Date: 20250317
  Transmission Date: 20250409
  Serious: Yes (Death)
  Sender: MYLAN
  Company Number: IE-MYLANLABS-2025M1022730

PATIENT
  Sex: Male

DRUGS (1)
  1. CLOZARIL [Suspect]
     Active Substance: CLOZAPINE
     Indication: Schizophrenia

REACTIONS (2)
  - Sepsis [Fatal]
  - Pneumonia [Fatal]
